FAERS Safety Report 5255619-5 (Version None)
Quarter: 2007Q1

REPORT INFORMATION
  Report Type: 
  Country: None (occurrence: None)
  Receive Date: 20061201
  Receipt Date: 20061010
  Transmission Date: 20070707
  Serious: No
  Sender: FDA-Public Use
  Company Number: 2006MP001113

PATIENT
  Age: 74 Year
  Sex: Male
  Weight: 79.8331 kg

DRUGS (1)
  1. DACOGEN [Suspect]
     Indication: MYELODYSPLASTIC SYNDROME
     Dosage: 40 MG/M**2/QD/ IV
     Route: 042
     Dates: start: 20061009, end: 20061013

REACTIONS (3)
  - INFUSION SITE EXTRAVASATION [None]
  - INJECTION SITE IRRITATION [None]
  - OFF LABEL USE [None]
